FAERS Safety Report 10763652 (Version 2)
Quarter: 2018Q2

REPORT INFORMATION
  Report Type: Report from Study
  Country: US (occurrence: US)
  Receive Date: 20150204
  Receipt Date: 20180621
  Transmission Date: 20180711
  Serious: Yes (Death, Other)
  Sender: FDA-Public Use
  Company Number: US-SA-2015SA006127

PATIENT
  Age: 92 Year
  Sex: Female

DRUGS (1)
  1. TERIFLUNOMIDE [Suspect]
     Active Substance: TERIFLUNOMIDE
     Indication: MULTIPLE SCLEROSIS
     Dosage: 7 MG,QD
     Route: 048
     Dates: start: 20150103

REACTIONS (3)
  - Death [Fatal]
  - Primary hyperaldosteronism [Unknown]
  - Memory impairment [Unknown]

NARRATIVE: CASE EVENT DATE: 201501
